FAERS Safety Report 4298817-X (Version None)
Quarter: 2004Q1

REPORT INFORMATION
  Report Type: 
  Country: None (occurrence: None)
  Receive Date: 20040126
  Receipt Date: 20030912
  Transmission Date: 20041129
  Serious: No
  Sender: FDA-Public Use
  Company Number: USA030947085

PATIENT
  Age: 7 Year
  Sex: Female
  Weight: 25 kg

DRUGS (3)
  1. STRATTERA [Suspect]
     Indication: ABNORMAL BEHAVIOUR
     Dosage: 18 MG/DAY
     Dates: start: 20030907
  2. STRATTERA [Suspect]
     Indication: ANXIETY
     Dosage: 18 MG/DAY
     Dates: start: 20030907
  3. STRATTERA [Suspect]
     Indication: PSYCHOMOTOR HYPERACTIVITY
     Dosage: 18 MG/DAY
     Dates: start: 20030907

REACTIONS (10)
  - ANXIETY [None]
  - DRUG INEFFECTIVE [None]
  - FEELING ABNORMAL [None]
  - INSOMNIA [None]
  - IRRITABILITY [None]
  - MEMORY IMPAIRMENT [None]
  - MOOD SWINGS [None]
  - MYDRIASIS [None]
  - PSYCHOMOTOR HYPERACTIVITY [None]
  - RETCHING [None]
